FAERS Safety Report 8186009-3 (Version None)
Quarter: 2012Q1

REPORT INFORMATION
  Report Type: 
  Country: None (occurrence: None)
  Receive Date: 20120306
  Receipt Date: 20120228
  Transmission Date: 20120608
  Serious: Yes (Hospitalization)
  Sender: FDA-Public Use
  Company Number: US-BIOGENIDEC-2010BI004723

PATIENT
  Age: 67 Year
  Sex: Female
  Weight: 61 kg

DRUGS (13)
  1. ESTRADERM [Concomitant]
  2. TYSABRI [Suspect]
     Route: 042
     Dates: start: 20050127, end: 20050224
  3. TYSABRI [Suspect]
     Indication: MULTIPLE SCLEROSIS
     Route: 042
     Dates: start: 20060830, end: 20100112
  4. FISH OIL [Concomitant]
  5. DIURETICS (NOS) [Concomitant]
  6. SINUTAB [Concomitant]
  7. ACTONEL [Concomitant]
  8. IBUPROFEN (ADVIL) [Concomitant]
  9. MULTIVITAMIN (NOS) [Concomitant]
  10. ZANAFLEX [Concomitant]
     Indication: MUSCLE SPASTICITY
  11. TYSABRI [Suspect]
     Route: 042
     Dates: start: 20060830, end: 20100112
  12. PROVIGIL [Concomitant]
  13. VITAMIN B-12 [Concomitant]

REACTIONS (1)
  - PROGRESSIVE MULTIFOCAL LEUKOENCEPHALOPATHY [None]
